FAERS Safety Report 7311941-X (Version None)
Quarter: 2011Q1

REPORT INFORMATION
  Report Type: 
  Country: None (occurrence: None)
  Receive Date: 20110224
  Receipt Date: 20110216
  Transmission Date: 20110831
  Serious: Yes (Other)
  Sender: FDA-Public Use
  Company Number: JP-ASTRAZENECA-2011SE06213

PATIENT
  Age: 54 Year
  Sex: Male

DRUGS (5)
  1. ESTRACYT [Suspect]
     Route: 048
     Dates: start: 20071108, end: 20080306
  2. ESTRACYT [Suspect]
     Route: 048
     Dates: start: 20080403
  3. ODYNE [Suspect]
     Route: 048
     Dates: start: 20080306, end: 20080403
  4. CASODEX [Suspect]
     Indication: PROSTATE CANCER
     Route: 048
     Dates: start: 20070502, end: 20071108
  5. DIETHYLSTILBESTROL [Suspect]
     Route: 042
     Dates: start: 20070417, end: 20070502

REACTIONS (1)
  - DESMOID TUMOUR [None]
